FAERS Safety Report 9897364 (Version 3)
Quarter: 2014Q1

REPORT INFORMATION
  Report Type: Report from Study
  Country: US (occurrence: US)
  Receive Date: 20140214
  Receipt Date: 20140228
  Transmission Date: 20141002
  Serious: Yes (Hospitalization)
  Sender: FDA-Public Use
  Company Number: US-JNJFOC-20140206898

PATIENT
  Age: 15 Year
  Sex: Male
  Weight: 41.5 kg

DRUGS (2)
  1. REMICADE [Suspect]
     Indication: INFLAMMATORY BOWEL DISEASE
     Route: 042
     Dates: start: 20120815
  2. METHOTREXATE [Concomitant]
     Route: 065

REACTIONS (1)
  - Clostridium difficile infection [Recovered/Resolved]
